FAERS Safety Report 10277901 (Version 1)
Quarter: 2014Q3

REPORT INFORMATION
  Report Type: Spontaneous
  Country: DE (occurrence: DE)
  Receive Date: 20140704
  Receipt Date: 20140704
  Transmission Date: 20150326
  Serious: Yes (Death, Congenital Anomaly, Other)
  Sender: FDA-Public Use
  Company Number: DE-RANBAXY-2014RR-82979

PATIENT
  Age: 1 Day
  Sex: Male

DRUGS (5)
  1. VALDOXAN [Suspect]
     Active Substance: AGOMELATINE
     Indication: ANXIETY DISORDER
     Dosage: 25 MG, QD, FROM 0 TO 35.1 GESTATIONAL WEEK
     Route: 064
     Dates: start: 20130522, end: 20140123
  2. CELESTAN [Concomitant]
     Active Substance: BETAMETHASONE
     Indication: MATERNAL THERAPY TO ENHANCE FOETAL LUNG MATURITY
     Dosage: ON 33.6 GESTATIONAL WEEK
     Route: 064
     Dates: start: 20140114, end: 20140114
  3. INSULIN [Concomitant]
     Active Substance: INSULIN NOS
     Indication: GESTATIONAL DIABETES
     Dosage: FROM GESTATIONAL WEEK 26 UNTIL DELIVERY
     Route: 064
  4. RAMIPRIL. [Suspect]
     Active Substance: RAMIPRIL
     Indication: HYPERTENSION
     Dosage: FROM BEFORE PREGNANCY UNTIL 5 GESTATIONAL WEEK
     Route: 064
  5. HYDROCHLOROTHIAZIDE. [Suspect]
     Active Substance: HYDROCHLOROTHIAZIDE
     Indication: HYPERTENSION
     Dosage: FROM BEFORE PREGNANCY UNTIL 5 GESTATIONAL WEEK
     Route: 064

REACTIONS (7)
  - Patent ductus arteriosus [Not Recovered/Not Resolved]
  - Cryptorchism [Not Recovered/Not Resolved]
  - Neonatal respiratory distress syndrome [Not Recovered/Not Resolved]
  - Meningomyelocele [Not Recovered/Not Resolved]
  - Laryngeal cleft [Fatal]
  - Cerebral calcification [Not Recovered/Not Resolved]
  - Congenital diaphragmatic hernia [Not Recovered/Not Resolved]

NARRATIVE: CASE EVENT DATE: 20140123
